FAERS Safety Report 15262055 (Version 1)
Quarter: 2018Q3

REPORT INFORMATION
  Report Type: Report from Study
  Country: US (occurrence: GH)
  Receive Date: 20180809
  Receipt Date: 20180809
  Transmission Date: 20181010
  Serious: Yes (Death, Hospitalization, Other)
  Sender: FDA-Public Use
  Company Number: US-GLAXOSMITHKLINE-GH2018GSK143934

PATIENT
  Age: 25 Year
  Sex: Male

DRUGS (1)
  1. ATOVAQUONE + PROGUANIL HYDROCHLORIDE [Suspect]
     Active Substance: ATOVAQUONE\PROGUANIL HYDROCHLORIDE
     Indication: PROPHYLACTIC CHEMOTHERAPY

REACTIONS (7)
  - Cerebral malaria [Unknown]
  - Cognitive disorder [Unknown]
  - Cardiac arrest [Unknown]
  - Brain herniation [Unknown]
  - Treatment noncompliance [Unknown]
  - Death [Fatal]
  - Brain death [Fatal]

NARRATIVE: CASE EVENT DATE: 20150227
